FAERS Safety Report 11177845 (Version 1)
Quarter: 2015Q2

REPORT INFORMATION
  Report Type: Spontaneous
  Country: US (occurrence: None)
  Receive Date: 20150609
  Receipt Date: 20150609
  Transmission Date: 20150821
  Serious: Yes (Hospitalization)
  Sender: FDA-Public Use
  Company Number: None

PATIENT
  Age: 26 Year
  Sex: Female
  Weight: 84.82 kg

DRUGS (3)
  1. LISINOPRIL. [Concomitant]
     Active Substance: LISINOPRIL
  2. HUMULIN R [Suspect]
     Active Substance: INSULIN HUMAN
     Indication: DIABETES MELLITUS
     Dosage: DEPENDS ON WHAT I EAT, GIVEN INTO/UNDER THE SKIN
     Dates: start: 20150526, end: 20150608
  3. OMNIPOD [Concomitant]

REACTIONS (2)
  - Blood glucose decreased [None]
  - Loss of consciousness [None]

NARRATIVE: CASE EVENT DATE: 20150529
